FAERS Safety Report 5419006-9 (Version None)
Quarter: 2007Q3

REPORT INFORMATION
  Report Type: 
  Country: None (occurrence: None)
  Receive Date: 20070817
  Receipt Date: 20070807
  Transmission Date: 20080115
  Serious: Yes (Other)
  Sender: FDA-Public Use
  Company Number: US-PFIZER INC-2007066866

PATIENT
  Sex: Female
  Weight: 84.1 kg

DRUGS (5)
  1. CHANTIX [Suspect]
     Indication: SMOKING CESSATION THERAPY
     Dates: start: 20070601, end: 20070802
  2. XOPENEX [Concomitant]
  3. KLONOPIN [Concomitant]
  4. CYMBALTA [Concomitant]
  5. TALWIN [Concomitant]

REACTIONS (4)
  - EATING DISORDER [None]
  - PARANOIA [None]
  - PSYCHOTIC DISORDER [None]
  - WEIGHT DECREASED [None]
